FAERS Safety Report 9581295 (Version 2)
Quarter: 2014Q2

REPORT INFORMATION
  Report Type: Spontaneous
  Country: US (occurrence: US)
  Receive Date: 20131002
  Receipt Date: 20140611
  Transmission Date: 20141212
  Serious: No
  Sender: FDA-Public Use
  Company Number: US-PFIZER INC-2013279293

PATIENT
  Age: 48 Year
  Sex: Male
  Weight: 79.37 kg

DRUGS (5)
  1. LIPITOR [Concomitant]
     Indication: BLOOD CHOLESTEROL ABNORMAL
     Dosage: UNK
  2. DILANTIN [Suspect]
     Indication: CONVULSION
     Dosage: 100 MG,  5X/DAY
     Route: 048
     Dates: start: 1984
  3. DILANTIN [Suspect]
     Dosage: 100 MG, 4X/DAY
     Dates: start: 1990
  4. CRESTOR [Concomitant]
     Indication: BLOOD CHOLESTEROL INCREASED
     Dosage: UNK
  5. ASPIRIN [Concomitant]
     Indication: ANTICOAGULANT THERAPY
     Dosage: 81 MG, UNK

REACTIONS (1)
  - Drug screen false positive [Not Recovered/Not Resolved]
